FAERS Safety Report 11703002 (Version 2)
Quarter: 2016Q1

REPORT INFORMATION
  Report Type: Report from Study
  Country: TR (occurrence: TR)
  Receive Date: 20151105
  Receipt Date: 20160128
  Transmission Date: 20160525
  Serious: Yes (Death, Life-Threatening, Hospitalization, Other)
  Sender: FDA-Public Use
  Company Number: TR-SEATTLE GENETICS-2015SGN01731

PATIENT

DRUGS (38)
  1. DOXORUBICIN [Suspect]
     Active Substance: DOXORUBICIN
     Indication: HODGKIN^S DISEASE
     Dosage: 50 MG, UNK
     Route: 042
     Dates: start: 20150721, end: 20150721
  2. MOPEM [Concomitant]
     Dosage: 1 G, UNK
     Route: 042
     Dates: start: 20150801
  3. CORDARONE [Concomitant]
     Active Substance: AMIODARONE HYDROCHLORIDE
     Dosage: 200 MG, UNK
     Dates: start: 20150802
  4. HUMALOG MIX [Concomitant]
     Active Substance: INSULIN LISPRO
     Dosage: UNK
     Dates: start: 20150801
  5. VOLUVEN [Concomitant]
     Active Substance: HYDROXYETHYL STARCH 130/0.4
     Dosage: 500 ML, UNK
     Dates: start: 20150801
  6. BRENTUXIMAB VEDOTIN [Suspect]
     Active Substance: BRENTUXIMAB VEDOTIN
     Indication: HODGKIN^S DISEASE
     Dosage: 127 MG, UNK
     Route: 042
     Dates: start: 20150721, end: 20150721
  7. VINBLASTINE [Suspect]
     Active Substance: VINBLASTINE
     Indication: HODGKIN^S DISEASE
     Dosage: 12 MG, UNK
     Route: 042
     Dates: start: 20150721, end: 20150721
  8. DACARBAZINE. [Suspect]
     Active Substance: DACARBAZINE
     Indication: HODGKIN^S DISEASE
     Dosage: 750 MG, UNK
     Route: 042
     Dates: start: 20150721, end: 20150721
  9. NAHCO3 [Concomitant]
     Active Substance: SODIUM BICARBONATE
     Dosage: UNK
     Dates: start: 20150801
  10. LEUCOSTIM [Concomitant]
     Active Substance: FILGRASTIM
     Dosage: UNK
     Dates: start: 20150802
  11. NEVPARIN [Concomitant]
     Dosage: UNK
     Dates: start: 20150802
  12. RANITAB                            /00550801/ [Concomitant]
     Dosage: UNK
     Dates: start: 20150802
  13. ASPIRIN                            /00002701/ [Concomitant]
     Active Substance: ASPIRIN
     Dosage: 100 MG, UNK
     Dates: start: 20150801
  14. BIEMEFRIN [Concomitant]
     Dosage: UNK
     Dates: start: 20150801
  15. HUMULIN R [Concomitant]
     Active Substance: INSULIN HUMAN
     Dosage: UNK
     Dates: start: 20150801
  16. URSACTIVE [Concomitant]
     Dosage: 250 MG, UNK
     Dates: start: 20151001
  17. VOLTAREN [Concomitant]
     Active Substance: DICLOFENAC SODIUM
     Dosage: 75 MG, UNK
     Dates: start: 20151001
  18. TRADOLEX [Concomitant]
     Dosage: UNK
     Dates: start: 20151002
  19. BELOC                              /00030002/ [Concomitant]
     Dosage: UNK
     Dates: start: 20150801
  20. ENOX [Concomitant]
     Dosage: UNK
     Dates: start: 20150801
  21. FLAGYL [Concomitant]
     Active Substance: METRONIDAZOLE\METRONIDAZOLE HYDROCHLORIDE
     Dosage: 500 MG, UNK
     Dates: start: 20150801
  22. PARACEROL [Concomitant]
     Dosage: UNK
     Dates: start: 20150801
  23. ABOUND [Concomitant]
     Dosage: 24 G, UNK
     Dates: start: 20151001
  24. KALINOR                            /00031402/ [Concomitant]
     Active Substance: POTASSIUM CITRATE
     Dosage: UNK
     Dates: start: 20151001
  25. PREDNOL-L [Concomitant]
     Dosage: 40 MG, UNK
     Dates: start: 20150801
  26. DEXTROSE. [Concomitant]
     Active Substance: DEXTROSE
     Dosage: 500 ML, UNK
     Dates: start: 20150801
  27. BUDECORT STERI NEB [Concomitant]
     Dosage: UNK
     Dates: start: 20150802
  28. COLIMYCIN                          /00013203/ [Concomitant]
     Dosage: 150 MG, UNK
     Dates: start: 20151001
  29. ADEPIRON [Concomitant]
     Dosage: 500 MG, UNK
     Dates: start: 20151002
  30. HUMAN ALBUMIN [Concomitant]
     Active Substance: ALBUMIN (HUMAN)
     Dosage: UNK
     Dates: start: 20150801
  31. TARGOCID [Concomitant]
     Active Substance: TEICOPLANIN
     Dosage: 200 MG, UNK
     Dates: start: 20150801
  32. PROTIFAR [Concomitant]
     Dosage: UNK
     Dates: start: 20151001
  33. MEROSID [Concomitant]
     Dosage: 1000 MG, UNK
     Dates: start: 20151001
  34. DOBCARD [Concomitant]
     Dosage: UNK
     Dates: start: 20150801
  35. GADEXON [Concomitant]
     Dosage: UNK
     Dates: start: 20150801
  36. PANTONIX [Concomitant]
     Dosage: 40 MG, UNK
     Route: 042
     Dates: start: 20150801
  37. SODIUM CHLORIDE. [Concomitant]
     Active Substance: SODIUM CHLORIDE
     Dosage: 500 ML, UNK
     Dates: start: 20150801
  38. MAGNESIUM SULFATE. [Concomitant]
     Active Substance: MAGNESIUM SULFATE
     Dosage: 4.5 G, UNK
     Dates: start: 20151002

REACTIONS (4)
  - Acute kidney injury [Fatal]
  - Septic shock [Fatal]
  - Disseminated intravascular coagulation [Fatal]
  - Sepsis [Fatal]

NARRATIVE: CASE EVENT DATE: 20151026
